FAERS Safety Report 5314113-3 (Version None)
Quarter: 2007Q2

REPORT INFORMATION
  Report Type: 
  Country: None (occurrence: None)
  Receive Date: 20070426
  Receipt Date: 20070413
  Transmission Date: 20071010
  Serious: Yes (Other)
  Sender: FDA-Public Use
  Company Number: GXKR2007GB03513

PATIENT
  Age: 30 Year
  Sex: Female
  Weight: 80 kg

DRUGS (3)
  1. DOXYCYCLINE [Suspect]
     Indication: ACNE
     Dosage: 50 MG, QD, ORAL
     Route: 048
     Dates: start: 20070220
  2. LITHIUM CARBONATE [Concomitant]
  3. VALPROATE SODIUM [Concomitant]

REACTIONS (4)
  - DRY SKIN [None]
  - ERYTHEMA [None]
  - PRURITUS [None]
  - RASH [None]
